FAERS Safety Report 5722896-3 (Version None)
Quarter: 2008Q2

REPORT INFORMATION
  Report Type: 
  Country: None (occurrence: None)
  Receive Date: 20080425
  Receipt Date: 20080411
  Transmission Date: 20081010
  Serious: Yes (Hospitalization)
  Sender: FDA-Public Use
  Company Number: JPKYO-S-20080027

PATIENT
  Age: 58 Year
  Sex: Female

DRUGS (11)
  1. NAVELBINE [Suspect]
     Indication: BREAST CANCER
     Dosage: 25 MG/M2 QD IV
     Route: 042
     Dates: start: 20080205, end: 20080226
  2. HERCEPTIN [Concomitant]
  3. AMLODIN [Concomitant]
  4. OLMETEC [Concomitant]
  5. DEPAKENE [Concomitant]
  6. FAMOTIDINE [Concomitant]
  7. RINDERON [Concomitant]
  8. LOXOPROFEN [Concomitant]
  9. MUCOSTA [Concomitant]
  10. LENDORMIN [Concomitant]
  11. DEPAS [Concomitant]

REACTIONS (3)
  - HAEMATURIA [None]
  - HAEMORRHAGE [None]
  - THROMBOCYTOPENIA [None]
